FAERS Safety Report 5020885-8 (Version None)
Quarter: 2006Q2

REPORT INFORMATION
  Report Type: 
  Country: None (occurrence: None)
  Receive Date: 20060602
  Receipt Date: 20060524
  Transmission Date: 20061013
  Serious: Yes (Hospitalization)
  Sender: FDA-Public Use
  Company Number: 2006068487

PATIENT
  Age: 52 Year
  Sex: Female

DRUGS (3)
  1. CHC CLINICAL STUDY (CALCIUM CARBONATE) [Suspect]
     Indication: DYSPEPSIA
     Dosage: 800 MG, ORAL
     Route: 048
     Dates: start: 20060511
  2. DIHYDROXYALUMINUM SODIUM CARBONATE (DIHYDROXYALUMINUM SODIUM CARBONATE [Concomitant]
  3. MULTIVITAMINS (ASCORBIC ACID, ERGOCALCIFEROL, FOLIC ACID, NICOTINAMIDE [Concomitant]

REACTIONS (4)
  - BACK PAIN [None]
  - HEPATIC NEOPLASM [None]
  - ILL-DEFINED DISORDER [None]
  - VOMITING [None]
